FAERS Safety Report 4318472-X (Version None)
Quarter: 2004Q1

REPORT INFORMATION
  Report Type: 
  Country: None (occurrence: None)
  Receive Date: 20040316
  Receipt Date: 20040316
  Transmission Date: 20041129
  Serious: Yes (Other)
  Sender: FDA-Public Use
  Company Number: None

PATIENT
  Sex: Female
  Weight: 51.8 kg

DRUGS (7)
  1. SIROLIMUS - 1 MG WYETH [Suspect]
     Indication: PANCREAS ISLET CELL TRANSPLANT
     Dosage: 6 MG PO QD
     Route: 048
     Dates: start: 20030801
  2. SIROLIMUS - 1 MG WYETH [Suspect]
     Indication: POST PROCEDURAL COMPLICATION
     Dosage: 6 MG PO QD
     Route: 048
     Dates: start: 20030801
  3. TACROLIMUS [Concomitant]
  4. BACTRIM [Concomitant]
  5. HUMALOG [Concomitant]
  6. NEXIUM [Concomitant]
  7. SYNTHROID [Concomitant]

REACTIONS (2)
  - DRUG LEVEL ABOVE THERAPEUTIC [None]
  - NEUTROPENIA [None]
